APPROVED DRUG PRODUCT: MICONAZOLE 3
Active Ingredient: MICONAZOLE NITRATE
Strength: 4%
Dosage Form/Route: CREAM;VAGINAL
Application: A076773 | Product #001
Applicant: SUN PHARMA CANADA INC
Approved: Mar 2, 2005 | RLD: No | RS: No | Type: OTC